FAERS Safety Report 10637409 (Version 1)
Quarter: 2014Q4

REPORT INFORMATION
  Report Type: Spontaneous
  Country: US (occurrence: None)
  Receive Date: 20141204
  Receipt Date: 20141204
  Transmission Date: 20150529
  Serious: Yes (Death)
  Sender: FDA-Public Use
  Company Number: None

PATIENT
  Age: 28 Year
  Sex: Female

DRUGS (15)
  1. BENADRYL [Concomitant]
     Active Substance: DIPHENHYDRAMINE HYDROCHLORIDE
  2. HYDROXYZ HCL [Concomitant]
     Active Substance: HYDROXYZINE HYDROCHLORIDE
  3. ASPIRIN. [Concomitant]
     Active Substance: ASPIRIN
  4. CINRYZE [Concomitant]
     Active Substance: HUMAN C1-ESTERASE INHIBITOR
  5. SOLU-CORTEF [Suspect]
     Active Substance: HYDROCORTISONE SODIUM SUCCINATE
     Indication: ADRENAL DISORDER
     Route: 042
     Dates: start: 20110809, end: 20141202
  6. CINRYZE [Concomitant]
     Active Substance: HUMAN C1-ESTERASE INHIBITOR
  7. DIPHENHYDRAMINE [Concomitant]
     Active Substance: DIPHENHYDRAMINE
  8. CORTISONE AC [Concomitant]
  9. VALTREX [Concomitant]
     Active Substance: VALACYCLOVIR HYDROCHLORIDE
  10. NEURONTIN [Concomitant]
     Active Substance: GABAPENTIN
  11. FIRAZYA [Concomitant]
  12. FUROSEMIDE POW [Concomitant]
  13. SOLU-CORTEF [Concomitant]
     Active Substance: HYDROCORTISONE SODIUM SUCCINATE
  14. SOLU-MEDROL [Concomitant]
     Active Substance: METHYLPREDNISOLONE SODIUM SUCCINATE
  15. PEPCID [Concomitant]
     Active Substance: FAMOTIDINE

REACTIONS (1)
  - Death [None]

NARRATIVE: CASE EVENT DATE: 20141202
